FAERS Safety Report 5253082-1 (Version None)
Quarter: 2007Q1

REPORT INFORMATION
  Report Type: 
  Country: None (occurrence: None)
  Receive Date: 20070301
  Receipt Date: 20070219
  Transmission Date: 20070707
  Serious: Yes (Hospitalization)
  Sender: FDA-Public Use
  Company Number: FR-BRISTOL-MYERS SQUIBB COMPANY-13685599

PATIENT
  Age: 59 Year
  Sex: Female
  Weight: 60 kg

DRUGS (12)
  1. FUNGIZONE [Suspect]
     Route: 048
  2. CORTANCYL [Suspect]
     Route: 048
     Dates: start: 20061005
  3. NOXAFIL [Suspect]
     Route: 048
  4. LEXOMIL [Suspect]
     Route: 048
  5. VALACYCLOVIR HCL [Suspect]
     Route: 048
  6. NEORAL [Suspect]
     Route: 048
     Dates: start: 20061005
  7. ORACILLINE [Suspect]
  8. BACTRIM DS [Suspect]
  9. OMEPRAZOLE [Suspect]
  10. LEDERFOLINE [Suspect]
  11. DI-ANTALVIC [Suspect]
     Dates: end: 20061225
  12. MORPHINE [Suspect]
     Dates: end: 20061225

REACTIONS (3)
  - CONFUSIONAL STATE [None]
  - DISORIENTATION [None]
  - MEMORY IMPAIRMENT [None]
